FAERS Safety Report 5153658-6 (Version None)
Quarter: 2006Q4

REPORT INFORMATION
  Report Type: 
  Country: None (occurrence: None)
  Receive Date: 20061114
  Receipt Date: 20061030
  Transmission Date: 20070319
  Serious: Yes (Other)
  Sender: FDA-Public Use
  Company Number: GXKR2006GB06844

PATIENT
  Age: 60 Year
  Sex: Female
  Weight: 57 kg

DRUGS (4)
  1. ITRACONAZOLE [Suspect]
     Dosage: ORAL
     Route: 048
     Dates: end: 20050101
  2. FLUCONAZOLE [Suspect]
     Dosage: 50 MG, QD, ORAL
     Route: 048
     Dates: end: 20050101
  3. VITAMINS (NO INGREDIENTS/SUBSTANCES) [Concomitant]
  4. MINERALS NOS (MINERALS NOS) [Concomitant]

REACTIONS (4)
  - BLOOD CREATININE INCREASED [None]
  - BLOOD UREA INCREASED [None]
  - LIVER FUNCTION TEST ABNORMAL [None]
  - MALAISE [None]
